FAERS Safety Report 6792945-2 (Version None)
Quarter: 2010Q2

REPORT INFORMATION
  Report Type: 
  Country: None (occurrence: None)
  Receive Date: 20100624
  Receipt Date: 20081106
  Transmission Date: 20101027
  Serious: No
  Sender: FDA-Public Use
  Company Number: US-PFIZER INC-2008086768

PATIENT
  Sex: Male
  Weight: 77 kg

DRUGS (1)
  1. SOLU-MEDROL [Suspect]
     Indication: ASTHMA
     Dosage: ONCE
     Route: 042
     Dates: start: 20081010

REACTIONS (1)
  - URTICARIA [None]
